FAERS Safety Report 10242159 (Version 3)
Quarter: 2014Q3

REPORT INFORMATION
  Report Type: Spontaneous
  Country: US (occurrence: None)
  Receive Date: 20140616
  Receipt Date: 20140716
  Transmission Date: 20150326
  Serious: Yes (Hospitalization, Other)
  Sender: FDA-Public Use
  Company Number: 2014CT000072

PATIENT
  Age: 66 Year
  Sex: Male
  Weight: 104.33 kg

DRUGS (11)
  1. METFORMIN [Concomitant]
     Active Substance: METFORMIN HYDROCHLORIDE
  2. EXFORGE [Concomitant]
     Active Substance: AMLODIPINE BESYLATE\VALSARTAN
  3. INVOKANA [Concomitant]
     Active Substance: CANAGLIFLOZIN
  4. ATORVASTATIN [Concomitant]
     Active Substance: ATORVASTATIN
  5. WELLBUTRIN [Concomitant]
     Active Substance: BUPROPION HYDROCHLORIDE
  6. KORLYM [Suspect]
     Active Substance: MIFEPRISTONE
     Indication: CUSHING^S SYNDROME
     Route: 048
     Dates: start: 20140522, end: 20140524
  7. METOPROLOL [Concomitant]
     Active Substance: METOPROLOL
  8. DULOXETINE [Concomitant]
     Active Substance: DULOXETINE
  9. VICTOZA [Concomitant]
     Active Substance: LIRAGLUTIDE
  10. FISH OIL [Concomitant]
     Active Substance: FISH OIL
  11. LANTUS [Concomitant]
     Active Substance: INSULIN GLARGINE

REACTIONS (6)
  - Pruritus [None]
  - Ear pruritus [None]
  - Staphylococcal infection [None]
  - Staphylococcal bacteraemia [None]
  - Disease recurrence [None]
  - Abdominal infection [None]

NARRATIVE: CASE EVENT DATE: 20140526
